FAERS Safety Report 4912404-9 (Version None)
Quarter: 2006Q1

REPORT INFORMATION
  Report Type: 
  Country: None (occurrence: None)
  Receive Date: 20060215
  Receipt Date: 20050224
  Transmission Date: 20060701
  Serious: No
  Sender: FDA-Public Use
  Company Number: US-GLAXOSMITHKLINE-A0547419A

PATIENT
  Sex: Female

DRUGS (1)
  1. VALTREX [Suspect]
     Route: 048
     Dates: start: 20040801

REACTIONS (4)
  - ALOPECIA [None]
  - DYSMENORRHOEA [None]
  - NAIL DISORDER [None]
  - PHOTOSENSITIVITY REACTION [None]
